FAERS Safety Report 11624433 (Version 7)
Quarter: 2018Q4

REPORT INFORMATION
  Report Type: Spontaneous
  Country: JP (occurrence: JP)
  Receive Date: 20151013
  Receipt Date: 20181109
  Transmission Date: 20190204
  Serious: Yes (Hospitalization)
  Sender: FDA-Public Use
  Company Number: JP-UNITED THERAPEUTICS-UNT-2015-001747

PATIENT
  Age: 23 Year
  Sex: Female
  Weight: 51 kg

DRUGS (31)
  1. REMODULIN [Suspect]
     Active Substance: TREPROSTINIL
     Dosage: 0.0173 ?G/KG, CONTINUING
     Route: 058
     Dates: start: 201505
  2. REMODULIN [Suspect]
     Active Substance: TREPROSTINIL
     Dosage: 0.016 ?G/KG, CONTINUING
     Route: 058
  3. TAKEPRON [Concomitant]
     Active Substance: LANSOPRAZOLE
     Indication: GASTROOESOPHAGEAL REFLUX DISEASE
     Dosage: 15 MG, QD
     Route: 048
     Dates: start: 20140320
  4. REMODULIN [Suspect]
     Active Substance: TREPROSTINIL
     Dosage: 0.0204 ?G/KG, CONTINUING
     Route: 058
  5. REMODULIN [Suspect]
     Active Substance: TREPROSTINIL
     Dosage: 0.018 ?G/KG, CONTINUING
     Route: 058
  6. REMODULIN [Suspect]
     Active Substance: TREPROSTINIL
     Indication: PULMONARY ARTERIAL HYPERTENSION
     Dosage: 0.01545 ?G/KG, CONTINUING
     Route: 041
     Dates: start: 20150625, end: 20150713
  7. DIART [Concomitant]
     Active Substance: AZOSEMIDE
     Indication: RIGHT VENTRICULAR FAILURE
     Dosage: 60 MG, QD
     Route: 048
     Dates: start: 20130528
  8. TRACLEER [Concomitant]
     Active Substance: BOSENTAN
     Indication: PULMONARY ARTERIAL HYPERTENSION
     Dosage: 250 MG, QD
     Route: 048
     Dates: start: 20130529
  9. REMODULIN [Suspect]
     Active Substance: TREPROSTINIL
     Dosage: 0.00242?G/KG, CONTINUING
     Route: 058
  10. REMODULIN [Suspect]
     Active Substance: TREPROSTINIL
     Indication: PULMONARY ARTERIAL HYPERTENSION
     Dosage: 0.006 ?G/KG, CONTINUING
     Route: 058
     Dates: start: 20150205, end: 20150622
  11. REMODULIN [Suspect]
     Active Substance: TREPROSTINIL
     Indication: SJOGREN^S SYNDROME
     Dosage: 0.00181?G/KG, CONTINUING
     Route: 058
  12. REMODULIN [Suspect]
     Active Substance: TREPROSTINIL
     Dosage: 0.01545 ?G/KG, CONTINUING
     Route: 058
  13. REMODULIN [Suspect]
     Active Substance: TREPROSTINIL
     Dosage: 0.01363 ?G/KG, CONTINUING
     Route: 041
  14. ADCIRCA [Concomitant]
     Active Substance: TADALAFIL
     Indication: PULMONARY ARTERIAL HYPERTENSION
     Dosage: 40 MG, QD
     Route: 048
     Dates: start: 20130919
  15. REMODULIN [Suspect]
     Active Substance: TREPROSTINIL
     Indication: CONNECTIVE TISSUE DISORDER
     Dosage: 0.00121?G/KG, CONTINUING
     Route: 058
  16. REMODULIN [Suspect]
     Active Substance: TREPROSTINIL
     Dosage: 0.00364 ?G/KG, CONTINUING
     Route: 058
  17. REMODULIN [Suspect]
     Active Substance: TREPROSTINIL
     Dosage: 0.00606 ?G/KG, CONTINUING
     Route: 058
  18. REMODULIN [Suspect]
     Active Substance: TREPROSTINIL
     Dosage: 0.0064 ?G/KG, CONTINUING
     Route: 058
  19. REMODULIN [Suspect]
     Active Substance: TREPROSTINIL
     Dosage: 0.0102 ?G/KG, CONTINUING
     Route: 058
  20. REMODULIN [Suspect]
     Active Substance: TREPROSTINIL
     Dosage: 0.01272 ?G/KG, CONTINUING
     Route: 041
  21. LANIRAPID [Concomitant]
     Active Substance: METILDIGOXIN
     Indication: RIGHT VENTRICULAR FAILURE
     Dosage: 0.05 MG, QD
     Route: 048
     Dates: start: 20130529
  22. TRACLEER [Concomitant]
     Active Substance: BOSENTAN
     Indication: SJOGREN^S SYNDROME
  23. REMODULIN [Suspect]
     Active Substance: TREPROSTINIL
     Dosage: 0.00303 ?G/KG, CONTINUING
     Route: 058
  24. REMODULIN [Suspect]
     Active Substance: TREPROSTINIL
     Dosage: 0.00424 ?G/KG, CONTINUING
     Route: 058
  25. REMODULIN [Suspect]
     Active Substance: TREPROSTINIL
     Dosage: 0.00485 ?G/KG, CONTINUING
     Route: 058
  26. REMODULIN [Suspect]
     Active Substance: TREPROSTINIL
     Dosage: 0.00545 ?G/KG, CONTINUING
     Route: 058
  27. ADCIRCA [Concomitant]
     Active Substance: TADALAFIL
     Indication: SJOGREN^S SYNDROME
  28. THYRADIN S [Concomitant]
     Active Substance: LEVOTHYROXINE SODIUM
     Indication: THYROIDITIS CHRONIC
     Dosage: 12.5 ?G, QD
     Route: 048
  29. SPIRONOLACTONE. [Concomitant]
     Active Substance: SPIRONOLACTONE
     Indication: RIGHT VENTRICULAR FAILURE
     Dosage: 25 MG, QD
     Route: 048
     Dates: start: 20130528
  30. ALOSITOL [Concomitant]
     Active Substance: ALLOPURINOL
     Indication: HYPERURICAEMIA
     Dosage: 100 MG, QD
     Route: 048
     Dates: start: 20130528
  31. THYRADIN S [Concomitant]
     Active Substance: LEVOTHYROXINE SODIUM
     Dosage: 25 ?G, QD
     Route: 048

REACTIONS (19)
  - Generalised erythema [Recovered/Resolved]
  - Dermatitis contact [Recovered/Resolved]
  - Malaise [Recovered/Resolved]
  - Infusion site cellulitis [Recovering/Resolving]
  - Urine output increased [Recovered/Resolved]
  - Dizziness [Unknown]
  - Pyrexia [Recovered/Resolved]
  - Pruritus generalised [Recovered/Resolved]
  - Menorrhagia [Recovering/Resolving]
  - Vomiting [Recovering/Resolving]
  - Dysphoria [Unknown]
  - Flushing [Unknown]
  - Type IV hypersensitivity reaction [Recovered/Resolved with Sequelae]
  - Nausea [Recovering/Resolving]
  - Diarrhoea [Not Recovered/Not Resolved]
  - Pain in jaw [Unknown]
  - Headache [Recovering/Resolving]
  - Chest discomfort [Recovered/Resolved]
  - Infusion site pain [Recovering/Resolving]

NARRATIVE: CASE EVENT DATE: 2015
